FAERS Safety Report 12357121 (Version 5)
Quarter: 2016Q3

REPORT INFORMATION
  Report Type: Spontaneous
  Country: US (occurrence: US)
  Receive Date: 20160511
  Receipt Date: 20160725
  Transmission Date: 20161109
  Serious: No
  Sender: FDA-Public Use
  Company Number: US-ACTELION-A-US2016-135828

PATIENT
  Age: 62 Year
  Sex: Female
  Weight: 53.97 kg

DRUGS (6)
  1. UPTRAVI [Suspect]
     Active Substance: SELEXIPAG
     Dosage: 800 MCG, BID
     Route: 048
  2. NIFEDIPINE. [Concomitant]
     Active Substance: NIFEDIPINE
  3. UPTRAVI [Suspect]
     Active Substance: SELEXIPAG
     Indication: PULMONARY ARTERIAL HYPERTENSION
     Dosage: 200 MCG, BID
     Route: 048
     Dates: start: 20160315
  4. UPTRAVI [Suspect]
     Active Substance: SELEXIPAG
     Dosage: 600 MCG, BID
     Route: 048
     Dates: start: 20160331
  5. UPTRAVI [Suspect]
     Active Substance: SELEXIPAG
     Dosage: 400 MCG, BID
     Route: 048
     Dates: start: 20160531
  6. RIOCIGUAT [Concomitant]
     Active Substance: RIOCIGUAT

REACTIONS (7)
  - Throat tightness [Unknown]
  - Dyspepsia [Unknown]
  - Bone pain [Recovering/Resolving]
  - Pain [Unknown]
  - Sputum discoloured [Unknown]
  - Headache [Unknown]
  - Myalgia [Recovering/Resolving]
